FAERS Safety Report 8028678-4 (Version None)
Quarter: 2012Q1

REPORT INFORMATION
  Report Type: 
  Country: None (occurrence: None)
  Receive Date: 20120106
  Receipt Date: 20111227
  Transmission Date: 20120608
  Serious: Yes (Hospitalization)
  Sender: FDA-Public Use
  Company Number: US-ACTELION-A-US2011-58919

PATIENT

DRUGS (3)
  1. LETAIRIS [Concomitant]
  2. SILDENAFIL [Concomitant]
  3. EPOPROSTENOL SODIUM [Suspect]
     Indication: PULMONARY ARTERIAL HYPERTENSION
     Dosage: 30 NG/KG, PER MIN
     Route: 042
     Dates: start: 20111102

REACTIONS (4)
  - MUSCLE STRAIN [None]
  - CHEST PAIN [None]
  - CARDIAC ENZYMES INCREASED [None]
  - DYSPNOEA [None]
